FAERS Safety Report 4638617-1 (Version None)
Quarter: 2005Q2

REPORT INFORMATION
  Report Type: 
  Country: None (occurrence: None)
  Receive Date: 20050415
  Receipt Date: 20050415
  Transmission Date: 20051028
  Serious: Yes (Life-Threatening, Hospitalization)
  Sender: FDA-Public Use
  Company Number: None

PATIENT
  Age: 28 Year
  Sex: Female
  Weight: 49.8957 kg

DRUGS (1)
  1. DESOGESTREL AND ETHINYL ESTRADIOL [Suspect]
     Indication: CONTRACEPTION
     Dosage: 1 PILL PER DAY

REACTIONS (5)
  - DIZZINESS [None]
  - FATIGUE [None]
  - MEDICATION TAMPERING [None]
  - PREGNANCY ON ORAL CONTRACEPTIVE [None]
  - RUPTURED ECTOPIC PREGNANCY [None]
